FAERS Safety Report 5930519-3 (Version None)
Quarter: 2008Q4

REPORT INFORMATION
  Report Type: 
  Country: None (occurrence: None)
  Receive Date: 20081026
  Receipt Date: 20081017
  Transmission Date: 20090506
  Serious: Yes (Other)
  Sender: FDA-Public Use
  Company Number: PHEH2008US08712

PATIENT
  Sex: Female

DRUGS (12)
  1. RECLAST [Suspect]
     Indication: OSTEOPOROSIS
     Dosage: 5 MG, ONCE/SINGLE
     Dates: start: 20080910, end: 20080910
  2. CALCIUM WITH VITAMIN D [Concomitant]
     Dosage: UNK
  3. PHENAZOPYRIDINE HCL TAB [Concomitant]
     Dosage: 100 MG, Q6H
     Route: 048
  4. LYRICA [Concomitant]
     Dosage: 100 MG, TID
  5. COUMADIN [Concomitant]
     Dosage: 3 MG, QD
     Route: 048
  6. COREG [Concomitant]
     Dosage: 20 MG, QD
     Route: 048
  7. NORVASC [Concomitant]
     Dosage: 5 MG, QD
     Route: 048
  8. ALPRAZOLAM [Concomitant]
     Dosage: 0.25 MG, QD PRN
     Route: 048
  9. AMBIEN [Concomitant]
     Dosage: 12.5 MG, QD PRN
     Route: 048
  10. VITAMIN D [Concomitant]
     Dosage: 50000 U, QMO
  11. HYDROCODONE BITARTRATE [Concomitant]
     Dosage: 5/500
  12. MEGESTROL ACETATE [Concomitant]
     Dosage: 40 MG/ML, 1/2 TSP, QD PRN

REACTIONS (5)
  - ASTHENIA [None]
  - BALANCE DISORDER [None]
  - CHEST PAIN [None]
  - HYPOCALCAEMIA [None]
  - THYROID DISORDER [None]
